FAERS Safety Report 25687766 (Version 1)
Quarter: 2025Q3

REPORT INFORMATION
  Report Type: Spontaneous
  Country: JP (occurrence: JP)
  Receive Date: 20250817
  Receipt Date: 20250817
  Transmission Date: 20251021
  Serious: Yes (Other)
  Sender: ALEXION PHARMACEUTICALS
  Company Number: JP-ASTRAZENECA-202507GLO026986JP

PATIENT
  Age: 68 Year
  Sex: Female

DRUGS (2)
  1. GEFITINIB [Suspect]
     Active Substance: GEFITINIB
     Indication: Lung adenocarcinoma
     Dosage: 250 MILLIGRAM, QD
     Route: 065
     Dates: start: 201211
  2. AFATINIB [Suspect]
     Active Substance: AFATINIB
     Indication: Lung adenocarcinoma
     Dosage: 30 MILLIGRAM, QD
     Route: 065
     Dates: start: 202306

REACTIONS (4)
  - Malignant neoplasm progression [Unknown]
  - EGFR gene mutation [Unknown]
  - Neoplasm recurrence [Unknown]
  - Drug resistance [Unknown]
